FAERS Safety Report 18652450 (Version 1)
Quarter: 2020Q4

REPORT INFORMATION
  Report Type: Spontaneous
  Country: US (occurrence: US)
  Receive Date: 20201223
  Receipt Date: 20201223
  Transmission Date: 20210114
  Serious: No
  Sender: FDA-Public Use
  Company Number: US-TAKEDA-2020TUS048700

PATIENT
  Sex: Female

DRUGS (1)
  1. VPRIV [Suspect]
     Active Substance: VELAGLUCERASE ALFA
     Indication: GAUCHER^S DISEASE
     Dosage: UNK DOSAGE FORM, 2/MONTH
     Route: 042
     Dates: start: 20200922

REACTIONS (3)
  - Inability to afford medication [Unknown]
  - Product dose omission issue [Not Recovered/Not Resolved]
  - No adverse event [Unknown]
